FAERS Safety Report 5798339-0 (Version None)
Quarter: 2008Q3

REPORT INFORMATION
  Report Type: 
  Country: None (occurrence: None)
  Receive Date: 20080702
  Receipt Date: 20080625
  Transmission Date: 20090109
  Serious: Yes (Other)
  Sender: FDA-Public Use
  Company Number: US-BAYER-200810514BCC

PATIENT
  Age: 71 Year
  Sex: Female
  Weight: 47 kg

DRUGS (2)
  1. BAYER EXTRA STRENGTH ASPIRIN CAPLET [Suspect]
     Indication: PYREXIA
     Dosage: UNIT DOSE: 500 MG
     Route: 048
     Dates: start: 20080202, end: 20080202
  2. BAYER EXTRA STRENGTH ASPIRIN CAPLET [Suspect]
     Dosage: UNIT DOSE: 500 MG
     Route: 048
     Dates: start: 20080203

REACTIONS (1)
  - DEAFNESS [None]
